FAERS Safety Report 21004148 (Version 1)
Quarter: 2022Q2

REPORT INFORMATION
  Report Type: Spontaneous
  Country: US (occurrence: US)
  Receive Date: 20220624
  Receipt Date: 20220624
  Transmission Date: 20220720
  Serious: No
  Sender: FDA-Public Use
  Company Number: US-AVEO ONCOLOGY-2022-AVEO-US000136

PATIENT

DRUGS (18)
  1. FOTIVDA [Suspect]
     Active Substance: TIVOZANIB HYDROCHLORIDE
     Indication: Renal cell carcinoma
     Dosage: 1.34 MG, 1 CAPSULE DAILY FOR 21 DAYS, 7 OFF
     Route: 048
     Dates: start: 20220413
  2. CLOPIDOGREL [Concomitant]
     Active Substance: CLOPIDOGREL BISULFATE
  3. DAPTOMYCIN [Concomitant]
     Active Substance: DAPTOMYCIN
  4. EVEROLIMUS [Concomitant]
     Active Substance: EVEROLIMUS
  5. FLUDROCORTISONE [Concomitant]
     Active Substance: FLUDROCORTISONE
  6. FUROSEMIDE [Concomitant]
     Active Substance: FUROSEMIDE
  7. ACETAMINOPHEN\HYDROCODONE [Concomitant]
     Active Substance: ACETAMINOPHEN\HYDROCODONE
  8. HEPARIN [Concomitant]
     Active Substance: HEPARIN SODIUM
  9. HYDROCORTISONE [Concomitant]
     Active Substance: HYDROCORTISONE
  10. LOPERAMIDE [Concomitant]
     Active Substance: LOPERAMIDE
  11. VITAMINS [Concomitant]
     Active Substance: VITAMINS
  12. ONDANSETRON [Concomitant]
     Active Substance: ONDANSETRON
  13. PRADAXA [Concomitant]
     Active Substance: DABIGATRAN ETEXILATE MESYLATE
  14. PROBIOTICS NOS [Concomitant]
     Active Substance: PROBIOTICS NOS
  15. TYLENOL WITH CODEINE [Concomitant]
     Active Substance: ACETAMINOPHEN\CODEINE PHOSPHATE
  16. LOMOTIL [Concomitant]
     Active Substance: ATROPINE SULFATE\DIPHENOXYLATE HYDROCHLORIDE
  17. SODIUM CHLORIDE [Concomitant]
     Active Substance: SODIUM CHLORIDE
  18. LISINOPRIL [Concomitant]
     Active Substance: LISINOPRIL

REACTIONS (5)
  - Fatigue [Unknown]
  - Nausea [Recovered/Resolved]
  - Blood pressure increased [Unknown]
  - Diarrhoea [Unknown]
  - Hypersomnia [Unknown]
